FAERS Safety Report 9893848 (Version 1)
Quarter: 2014Q1

REPORT INFORMATION
  Report Type: Spontaneous
  Country: US (occurrence: US)
  Receive Date: 20140213
  Receipt Date: 20140213
  Transmission Date: 20141002
  Serious: No
  Sender: FDA-Public Use
  Company Number: US-BAYER-2014-022688

PATIENT
  Age: 88 Year
  Sex: Male

DRUGS (3)
  1. ALEVE CAPLET [Suspect]
     Indication: ARTHRITIS
     Dosage: 2 DF, QD WITH FOOD
     Route: 048
     Dates: start: 2011
  2. XALATAN [Concomitant]
  3. TIMOLOL [Concomitant]

REACTIONS (1)
  - Incorrect drug administration duration [None]
